FAERS Safety Report 9948011 (Version 2)
Quarter: 2014Q1

REPORT INFORMATION
  Report Type: Report from Study
  Country: US (occurrence: US)
  Receive Date: 20140303
  Receipt Date: 20140303
  Transmission Date: 20141002
  Serious: Yes (Hospitalization, Other)
  Sender: FDA-Public Use
  Company Number: US-ABBVIE-13P-163-1049706-00

PATIENT
  Age: 31 Year
  Sex: Female

DRUGS (10)
  1. HUMIRA PEN [Suspect]
     Indication: CROHN^S DISEASE
     Route: 058
     Dates: start: 2008, end: 201207
  2. HUMIRA PEN [Suspect]
     Dates: start: 201209
  3. ZANTAC [Suspect]
     Indication: PRODUCT USED FOR UNKNOWN INDICATION
  4. ZYRTEC [Suspect]
     Indication: PRODUCT USED FOR UNKNOWN INDICATION
  5. SOLUMEDROL [Suspect]
     Indication: PRODUCT USED FOR UNKNOWN INDICATION
  6. TYLENOL [Suspect]
     Indication: PRODUCT USED FOR UNKNOWN INDICATION
  7. BENADRYL [Suspect]
     Indication: PRODUCT USED FOR UNKNOWN INDICATION
  8. REMICADE [Suspect]
     Indication: CROHN^S DISEASE
     Dates: start: 201208, end: 201209
  9. BENTYL [Concomitant]
     Indication: PRODUCT USED FOR UNKNOWN INDICATION
  10. MOTRIN [Concomitant]
     Indication: PRODUCT USED FOR UNKNOWN INDICATION

REACTIONS (16)
  - Large intestine perforation [Recovered/Resolved]
  - Cholecystectomy [Recovered/Resolved with Sequelae]
  - Cholelithiasis [Recovered/Resolved]
  - Pancreatitis [Recovered/Resolved]
  - Colitis [Unknown]
  - Diarrhoea [Unknown]
  - Nausea [Unknown]
  - Asthenia [Unknown]
  - Post procedural constipation [Unknown]
  - Chest pain [Recovered/Resolved]
  - Arthritis [Recovered/Resolved]
  - Tinnitus [Unknown]
  - Vertigo [Unknown]
  - Insomnia [Unknown]
  - Hearing impaired [Unknown]
  - Dizziness [Unknown]
